FAERS Safety Report 18689152 (Version 1)
Quarter: 2020Q4

REPORT INFORMATION
  Report Type: Spontaneous
  Country: US (occurrence: US)
  Receive Date: 20201231
  Receipt Date: 20201231
  Transmission Date: 20210114
  Serious: No
  Sender: FDA-Public Use
  Company Number: US-VERTEX PHARMACEUTICALS-2020-025447

PATIENT
  Sex: Female
  Weight: 40.91 kg

DRUGS (1)
  1. ORKAMBI [Suspect]
     Active Substance: IVACAFTOR\LUMACAFTOR
     Indication: CYSTIC FIBROSIS
     Dosage: TAKE 1 YELLOW TABLET IN THE MORNING AND 1 BLUE TABLET IN THE EVENING, APPROXIMATELY 12 HOURS APART.U
     Route: 048
     Dates: end: 2020

REACTIONS (1)
  - Headache [Unknown]
